FAERS Safety Report 23930013 (Version 2)
Quarter: 2025Q2

REPORT INFORMATION
  Report Type: Spontaneous
  Country: US (occurrence: US)
  Receive Date: 20240601
  Receipt Date: 20250415
  Transmission Date: 20250716
  Serious: Yes (Hospitalization, Other)
  Sender: AUROBINDO
  Company Number: US-AUROBINDO-AUR-APL-2024-025773

PATIENT
  Age: 46 Year
  Sex: Male

DRUGS (3)
  1. DAPTOMYCIN [Suspect]
     Active Substance: DAPTOMYCIN
     Indication: Staphylococcal bacteraemia
     Route: 042
  2. DAPTOMYCIN [Suspect]
     Active Substance: DAPTOMYCIN
     Indication: Diabetic foot
  3. LINEZOLID [Concomitant]
     Active Substance: LINEZOLID
     Indication: Staphylococcal bacteraemia
     Route: 048

REACTIONS (1)
  - Eosinophilic pneumonia [Recovering/Resolving]
